FAERS Safety Report 10389941 (Version 1)
Quarter: 2014Q1

REPORT INFORMATION
  Report Type: Spontaneous
  Country: US (occurrence: None)
  Receive Date: 20140306
  Receipt Date: 20140306
  Transmission Date: 20141002
  Serious: Yes (Hospitalization, Other)
  Sender: FDA-Public Use
  Company Number: 163-21880-13012644

PATIENT
  Age: 82 Year
  Sex: Female

DRUGS (5)
  1. REVLIMID (LENALIDOMIDE)(15 MILLIGRAM, CAPSULES) [Suspect]
     Indication: PLASMA CELL MYELOMA
     Route: 048
     Dates: start: 20110806, end: 201101
  2. METOPROLOL(METOPROLOL)(UNKNOWN) [Concomitant]
  3. ERYTHROMYCIN(ERYTHROMYCIN)(UNKNOWN) [Concomitant]
  4. VELCADE(BORTEZOMIB)(UNKNOWN) [Concomitant]
  5. COUMADIN(WARFARIN SODIUM)(UNKNOWN) [Concomitant]

REACTIONS (2)
  - Pneumonia [None]
  - Pyrexia [None]
